FAERS Safety Report 10420526 (Version 1)
Quarter: 2014Q3

REPORT INFORMATION
  Report Type: Spontaneous
  Country: US (occurrence: None)
  Receive Date: 20140714
  Receipt Date: 20140714
  Transmission Date: 20150326
  Serious: No
  Sender: FDA-Public Use
  Company Number: 2014US003273

PATIENT
  Age: 60 Year
  Sex: Male

DRUGS (1)
  1. ICLUSIG [Suspect]
     Active Substance: PONATINIB
     Indication: CHRONIC LEUKAEMIA
     Route: 048
     Dates: start: 20140422, end: 20140427

REACTIONS (1)
  - Urticaria [None]

NARRATIVE: CASE EVENT DATE: 20140422
